FAERS Safety Report 25686848 (Version 1)
Quarter: 2025Q3

REPORT INFORMATION
  Report Type: Spontaneous
  Country: GB (occurrence: GB)
  Receive Date: 20250816
  Receipt Date: 20250816
  Transmission Date: 20251021
  Serious: Yes (Life-Threatening, Other)
  Sender: PHARMAXIS
  Company Number: None

PATIENT
  Age: 76 Year
  Sex: Female

DRUGS (2)
  1. SERTRALINE [Suspect]
     Active Substance: SERTRALINE HYDROCHLORIDE
     Indication: Product used for unknown indication
     Route: 065
  2. MANNITOL [Suspect]
     Active Substance: MANNITOL
     Indication: Magnetic resonance imaging abdominal
     Route: 048
     Dates: start: 20250609

REACTIONS (2)
  - Haemodynamic instability [Recovering/Resolving]
  - Medication error [Unknown]

NARRATIVE: CASE EVENT DATE: 20250718
